FAERS Safety Report 19604943 (Version 3)
Quarter: 2021Q3

REPORT INFORMATION
  Report Type: Spontaneous
  Country: US (occurrence: US)
  Receive Date: 20210724
  Receipt Date: 20210811
  Transmission Date: 20211014
  Serious: No
  Sender: FDA-Public Use
  Company Number: US-SA-2021SA241204

PATIENT
  Age: 66 Year
  Sex: Male

DRUGS (1)
  1. LANTUS [Suspect]
     Active Substance: INSULIN GLARGINE
     Indication: TYPE 2 DIABETES MELLITUS
     Dosage: 25 IU, Q12H (25 UNITS 2 TIMIS A DAY)
     Route: 065

REACTIONS (3)
  - Inappropriate schedule of product administration [Unknown]
  - Injury associated with device [Unknown]
  - Device operational issue [Unknown]

NARRATIVE: CASE EVENT DATE: 20210719
